FAERS Safety Report 7072166-9 (Version None)
Quarter: 2010Q4

REPORT INFORMATION
  Report Type: 
  Country: None (occurrence: None)
  Receive Date: 20101029
  Receipt Date: 20100129
  Transmission Date: 20110411
  Serious: No
  Sender: FDA-Public Use
  Company Number: A0834785A

PATIENT
  Age: 55 Year
  Sex: Female

DRUGS (6)
  1. ADVAIR DISKUS 100/50 [Suspect]
     Indication: ASTHMA
     Dosage: 1PUFF THREE TIMES PER DAY
     Route: 055
     Dates: start: 20060101
  2. FENTANYL CITRATE [Concomitant]
  3. PROMETRIUM [Concomitant]
  4. ZYRTEC [Concomitant]
  5. VICODIN [Concomitant]
  6. ESTRADIOL [Concomitant]

REACTIONS (14)
  - BACK PAIN [None]
  - BLOOD PRESSURE INCREASED [None]
  - DYSPHONIA [None]
  - FEELING HOT [None]
  - FORMICATION [None]
  - HEADACHE [None]
  - HYPERHIDROSIS [None]
  - NASOPHARYNGITIS [None]
  - NAUSEA [None]
  - OVERDOSE [None]
  - PAIN [None]
  - PRODUCT QUALITY ISSUE [None]
  - RESTLESS LEGS SYNDROME [None]
  - TREMOR [None]
